FAERS Safety Report 26208585 (Version 1)
Quarter: 2025Q4

REPORT INFORMATION
  Report Type: Spontaneous
  Country: US (occurrence: None)
  Receive Date: 20251226
  Receipt Date: 20251226
  Transmission Date: 20260118
  Serious: Yes (Hospitalization)
  Sender: FDA-CTU
  Company Number: None

PATIENT
  Sex: Male

DRUGS (11)
  1. TAFINLAR [Suspect]
     Active Substance: DABRAFENIB MESYLATE
     Indication: Metastases to lymph nodes
     Dosage: TAKE 2 CAPSULES (150 MG TOTAL) BY MOUTH EVERY 12 HOURS. TAKE AT LEAST 1 HOUR BEFORE OR 2 HOURS AFTER A MEAL. DO NO OPEN, CRUSH, OR BREAK.
     Route: 048
     Dates: start: 20240601
  2. ACETAMINOPHEN [Concomitant]
     Active Substance: ACETAMINOPHEN
  3. ATORVASTATIN [Concomitant]
     Active Substance: ATORVASTATIN
  4. CELEBREX [Concomitant]
     Active Substance: CELECOXIB
  5. CLOBETASOL GEL 0.05% [Concomitant]
  6. EZETIMIBE [Concomitant]
     Active Substance: EZETIMIBE
  7. LEVOTHYROXINE [Concomitant]
     Active Substance: LEVOTHYROXINE
  8. MEKINIST [Concomitant]
     Active Substance: TRAMETINIB DIMETHYL SULFOXIDE
  9. MEKINIST [Concomitant]
     Active Substance: TRAMETINIB DIMETHYL SULFOXIDE
  10. MIDODRINE [Concomitant]
     Active Substance: MIDODRINE
  11. CELECOXIB [Concomitant]
     Active Substance: CELECOXIB

REACTIONS (1)
  - Hospitalisation [None]
